FAERS Safety Report 7968946-5 (Version None)
Quarter: 2011Q4

REPORT INFORMATION
  Report Type: 
  Country: None (occurrence: None)
  Receive Date: 20111208
  Receipt Date: 20111124
  Transmission Date: 20120403
  Serious: Yes (Other)
  Sender: FDA-Public Use
  Company Number: 1000025945

PATIENT
  Sex: Male

DRUGS (1)
  1. ESCITALOPRAM OXALATE [Suspect]
     Indication: DEPRESSION
     Dosage: 20 MG (10 MG,2 IN 1 D),ORAL
     Route: 048

REACTIONS (5)
  - HEART RATE IRREGULAR [None]
  - SOMNOLENCE [None]
  - SUICIDAL IDEATION [None]
  - DIZZINESS [None]
  - MALAISE [None]
